FAERS Safety Report 4345098-4 (Version None)
Quarter: 2004Q2

REPORT INFORMATION
  Report Type: 
  Country: None (occurrence: None)
  Receive Date: 20040421
  Receipt Date: 20040421
  Transmission Date: 20050107
  Serious: Yes (Hospitalization)
  Sender: FDA-Public Use
  Company Number: None

PATIENT
  Age: 72 Year
  Sex: Female
  Weight: 97.6 kg

DRUGS (1)
  1. RUBITECAN 1.5MG/M2 [Suspect]
     Indication: PANCREATIC CARCINOMA
     Dosage: 2.0 MG QD FOR 5 D ORAL
     Route: 048
     Dates: start: 20031217, end: 20040114

REACTIONS (3)
  - CEREBROVASCULAR ACCIDENT [None]
  - PLATELET COUNT DECREASED [None]
  - WHITE BLOOD CELL COUNT DECREASED [None]
